FAERS Safety Report 5766131-9 (Version None)
Quarter: 2008Q2

REPORT INFORMATION
  Report Type: 
  Country: None (occurrence: None)
  Receive Date: 20080611
  Receipt Date: 20080530
  Transmission Date: 20081010
  Serious: Yes (Other)
  Sender: FDA-Public Use
  Company Number: US-PFIZER INC-2008046919

PATIENT
  Sex: Male

DRUGS (2)
  1. CHANTIX [Suspect]
  2. ACETAMINOPHEN [Suspect]
     Indication: OVERDOSE

REACTIONS (3)
  - AGGRESSION [None]
  - LOSS OF CONSCIOUSNESS [None]
  - OVERDOSE [None]
